FAERS Safety Report 19093714 (Version 3)
Quarter: 2021Q2

REPORT INFORMATION
  Report Type: Report from Study
  Country: US (occurrence: US)
  Receive Date: 20210405
  Receipt Date: 20210605
  Transmission Date: 20210717
  Serious: No
  Sender: FDA-Public Use
  Company Number: NVSC2021US076557

PATIENT
  Sex: Male

DRUGS (2)
  1. FARXIGA [Concomitant]
     Active Substance: DAPAGLIFLOZIN PROPANEDIOL
     Indication: PRODUCT USED FOR UNKNOWN INDICATION
     Dosage: UNK
     Route: 065
  2. ENTRESTO [Suspect]
     Active Substance: SACUBITRIL\VALSARTAN
     Indication: PRODUCT USED FOR UNKNOWN INDICATION
     Dosage: 50 MG, Q12H (24/26 MG)
     Route: 048
     Dates: start: 20210331

REACTIONS (5)
  - Oropharyngeal discomfort [Unknown]
  - Dry mouth [Unknown]
  - Ejection fraction abnormal [Recovering/Resolving]
  - Pain [Unknown]
  - Cough [Unknown]
